FAERS Safety Report 25019607 (Version 1)
Quarter: 2025Q1

REPORT INFORMATION
  Report Type: Spontaneous
  Country: BR (occurrence: BR)
  Receive Date: 20250227
  Receipt Date: 20250227
  Transmission Date: 20250408
  Serious: Yes (Other)
  Sender: UCB
  Company Number: BR-UCBSA-2025011409

PATIENT
  Age: 85 Year
  Sex: Male

DRUGS (1)
  1. VIMPAT [Suspect]
     Active Substance: LACOSAMIDE
     Indication: Seizure
     Route: 048

REACTIONS (2)
  - Tracheostomy [Unknown]
  - Product use issue [Unknown]

NARRATIVE: CASE EVENT DATE: 20250206
